FAERS Safety Report 26163042 (Version 1)
Quarter: 2025Q4

REPORT INFORMATION
  Report Type: Spontaneous
  Country: GB (occurrence: GB)
  Receive Date: 20251216
  Receipt Date: 20251216
  Transmission Date: 20260117
  Serious: Yes (Life-Threatening)
  Sender: GRIFOLS
  Company Number: GB-IGSA-BIG0040033

PATIENT
  Age: 62 Year
  Sex: Female
  Weight: 61.69 kg

DRUGS (1)
  1. XEMBIFY [Suspect]
     Active Substance: HUMAN IMMUNOGLOBULIN G
     Indication: Hypogammaglobulinaemia
     Dosage: 2G/10ML, Q.WK.
     Route: 058
     Dates: start: 20250421, end: 20250602

REACTIONS (2)
  - Cough [Recovered/Resolved]
  - Chest discomfort [Recovered/Resolved]

NARRATIVE: CASE EVENT DATE: 20250421
